FAERS Safety Report 19142399 (Version 2)
Quarter: 2021Q2

REPORT INFORMATION
  Report Type: Spontaneous
  Country: US (occurrence: US)
  Receive Date: 20210416
  Receipt Date: 20210514
  Transmission Date: 20210717
  Serious: Yes (Other)
  Sender: FDA-Public Use
  Company Number: US-ASTRAZENECA-2021A299961

PATIENT
  Sex: Female
  Weight: 57.2 kg

DRUGS (2)
  1. INSULIN [Concomitant]
     Active Substance: INSULIN NOS
     Dosage: DOSE AND FREQUENCY UNKNOWN
     Route: 065
  2. SYMLIN [Suspect]
     Active Substance: PRAMLINTIDE ACETATE
     Indication: TYPE 2 DIABETES MELLITUS
     Dosage: 60 TWICE A DAY
     Route: 058

REACTIONS (3)
  - Pancreatic disorder [Unknown]
  - Drug delivery system malfunction [Unknown]
  - Incorrect dose administered by product [Unknown]
